FAERS Safety Report 5056479-8 (Version None)
Quarter: 2006Q2

REPORT INFORMATION
  Report Type: 
  Country: None (occurrence: None)
  Receive Date: 20060616
  Receipt Date: 20060322
  Transmission Date: 20061013
  Serious: Yes (Hospitalization)
  Sender: FDA-Public Use
  Company Number: 200612938US

PATIENT

DRUGS (1)
  1. LANTUS [Suspect]

REACTIONS (1)
  - HYPERSENSITIVITY [None]
